FAERS Safety Report 4385428-0 (Version None)
Quarter: 2004Q2

REPORT INFORMATION
  Report Type: 
  Country: None (occurrence: None)
  Receive Date: 20040622
  Receipt Date: 20040608
  Transmission Date: 20050107
  Serious: Yes (Hospitalization, Other)
  Sender: FDA-Public Use
  Company Number: 199572

PATIENT
  Age: 72 Year
  Sex: Female
  Weight: 45.3597 kg

DRUGS (7)
  1. AVONEX [Suspect]
     Indication: MULTIPLE SCLEROSIS
     Dosage: 30 MCG QW IM
     Route: 030
     Dates: start: 19960101, end: 20031201
  2. AVONEX [Suspect]
     Indication: MULTIPLE SCLEROSIS
     Dosage: 30 MCG QW IM
     Route: 030
     Dates: start: 20031201, end: 20040527
  3. AVONEX [Suspect]
     Indication: MULTIPLE SCLEROSIS
     Dosage: 30 MCG QW IM
     Route: 030
     Dates: start: 20040604
  4. MULTIVITAMIN [Concomitant]
  5. BACLOFEN [Concomitant]
  6. AMANTADINE HCL [Concomitant]
  7. PREMARIN [Concomitant]

REACTIONS (8)
  - CONDITION AGGRAVATED [None]
  - CONVULSION [None]
  - DEPRESSION [None]
  - EXCORIATION [None]
  - FALL [None]
  - HYPERTENSION [None]
  - MULTIPLE SCLEROSIS [None]
  - PELVIC FRACTURE [None]
